FAERS Safety Report 7270687-7 (Version None)
Quarter: 2011Q1

REPORT INFORMATION
  Report Type: 
  Country: None (occurrence: None)
  Receive Date: 20110202
  Receipt Date: 20110126
  Transmission Date: 20110831
  Serious: Yes (Hospitalization)
  Sender: FDA-Public Use
  Company Number: B0687069A

PATIENT
  Sex: Female
  Weight: 54 kg

DRUGS (4)
  1. XELODA [Suspect]
     Dosage: 3000MG PER DAY
     Route: 048
     Dates: start: 20101116, end: 20101118
  2. NOVAMINE [Suspect]
     Indication: PROPHYLAXIS OF NAUSEA AND VOMITING
     Route: 048
     Dates: start: 20090722, end: 20091124
  3. PYDOXAL [Suspect]
     Indication: PROPHYLAXIS
     Route: 048
     Dates: start: 20091116, end: 20091124
  4. TYKERB [Suspect]
     Dosage: 1250MG PER DAY
     Route: 048
     Dates: start: 20101116, end: 20101117

REACTIONS (8)
  - SUICIDAL IDEATION [None]
  - DEPRESSED MOOD [None]
  - MOOD ALTERED [None]
  - ANXIETY [None]
  - LISTLESS [None]
  - ANXIETY DISORDER DUE TO A GENERAL MEDICAL CONDITION [None]
  - DECREASED APPETITE [None]
  - DEPRESSION [None]
